FAERS Safety Report 4920473-5 (Version None)
Quarter: 2006Q1

REPORT INFORMATION
  Report Type: 
  Country: None (occurrence: None)
  Receive Date: 20060223
  Receipt Date: 20051207
  Transmission Date: 20060701
  Serious: Yes (Hospitalization)
  Sender: FDA-Public Use
  Company Number: US-MERCK-0512USA01357

PATIENT
  Age: 66 Year
  Sex: Female
  Weight: 66 kg

DRUGS (13)
  1. VIOXX [Suspect]
     Indication: ARTHRITIS
     Route: 048
  2. PREMARIN [Concomitant]
     Route: 048
  3. ALTACE [Concomitant]
     Route: 048
  4. SYNTHROID [Concomitant]
     Route: 048
  5. NITROGLYCERIN [Concomitant]
     Indication: CHEST PAIN
     Route: 065
     Dates: start: 20000411
  6. CARDIZEM CD [Concomitant]
     Indication: CHEST PAIN
     Route: 048
     Dates: start: 20000411
  7. L-THYROXIN [Concomitant]
     Route: 065
  8. TIAZAC [Concomitant]
     Route: 048
  9. IMDUR [Concomitant]
     Route: 048
  10. HYDROCHLOROTHIAZIDE [Concomitant]
     Route: 048
  11. LEVOXYL [Concomitant]
     Route: 048
  12. MEVACOR [Concomitant]
     Route: 048
  13. ASPIRIN [Concomitant]
     Route: 048

REACTIONS (10)
  - ANAEMIA [None]
  - ANGINA PECTORIS [None]
  - BLADDER PROLAPSE [None]
  - CHEST PAIN [None]
  - COLON NEOPLASM [None]
  - CONSTIPATION [None]
  - CROHN'S DISEASE [None]
  - HAEMATOCHEZIA [None]
  - NAUSEA [None]
  - VOMITING [None]
